FAERS Safety Report 7712622-0 (Version None)
Quarter: 2011Q3

REPORT INFORMATION
  Report Type: 
  Country: None (occurrence: None)
  Receive Date: 20110823
  Receipt Date: 20110808
  Transmission Date: 20111222
  Serious: Yes (Other)
  Sender: FDA-Public Use
  Company Number: MC201100240

PATIENT
  Sex: Male

DRUGS (2)
  1. ANGIOMAX [Suspect]
     Indication: CAROTID ARTERY STENT INSERTION
     Dosage: 0.75, 1.75  MG/KG, BOLUS
     Route: 040
  2. ASPIRIN [Concomitant]

REACTIONS (5)
  - CEREBROVASCULAR ACCIDENT [None]
  - REPERFUSION INJURY [None]
  - OFF LABEL USE [None]
  - CEREBRAL ARTERY OCCLUSION [None]
  - SLOW RESPONSE TO STIMULI [None]
